FAERS Safety Report 5657327-5 (Version None)
Quarter: 2008Q1

REPORT INFORMATION
  Report Type: 
  Country: None (occurrence: None)
  Receive Date: 20080310
  Receipt Date: 20080228
  Transmission Date: 20080703
  Serious: Yes (Other)
  Sender: FDA-Public Use
  Company Number: PHHY2008JP01082

PATIENT

DRUGS (1)
  1. NEORAL [Suspect]
     Route: 064

REACTIONS (3)
  - CONVULSION NEONATAL [None]
  - DRUG EXPOSURE DURING PREGNANCY [None]
  - EPILEPSY CONGENITAL [None]
